FAERS Safety Report 6579441-2 (Version None)
Quarter: 2010Q1

REPORT INFORMATION
  Report Type: 
  Country: None (occurrence: None)
  Receive Date: 20100212
  Receipt Date: 20100208
  Transmission Date: 20100710
  Serious: Yes (Death, Other)
  Sender: FDA-Public Use
  Company Number: FR-BRISTOL-MYERS SQUIBB COMPANY-14968929

PATIENT
  Age: 82 Year
  Sex: Male

DRUGS (16)
  1. COUMADIN [Suspect]
     Indication: ANTICOAGULANT THERAPY
     Dosage: STRENGTH:2MG 1 DF=1.25TABS DAILY TAKEN 1MG ON 23DEC09, THEN TAKEN 2MG
     Route: 048
     Dates: end: 20100101
  2. CALCIPARINE [Suspect]
     Indication: ANTICOAGULANT THERAPY
     Dosage: 1 DF = 0.6 TWICE A DAY ON 25DEC09 TAKEN 0.7 TWICE A DAY
     Route: 058
     Dates: start: 20091223, end: 20100103
  3. ORGARAN [Suspect]
     Indication: ANTICOAGULANT THERAPY
     Route: 058
     Dates: start: 20100104, end: 20100105
  4. KENZEN [Concomitant]
  5. BISOPROLOL [Concomitant]
  6. TARDYFERON [Concomitant]
     Dosage: STRENGTH: 80MG
  7. SPECIAFOLDINE [Concomitant]
  8. ZYLORIC [Concomitant]
  9. XATRAL [Concomitant]
     Dosage: XATRAL SR
  10. INIPOMP [Concomitant]
  11. LASILIX [Concomitant]
  12. LANTUS [Concomitant]
  13. ACTRAPID [Concomitant]
  14. ARANESP [Concomitant]
     Dosage: 1 DF = 40MG/ML
  15. SPIRIVA [Concomitant]
  16. SERETIDE [Concomitant]
     Dosage: 1DF = 250

REACTIONS (9)
  - ACCIDENTAL OVERDOSE [None]
  - ACUTE PULMONARY OEDEMA [None]
  - CONFUSIONAL STATE [None]
  - HAEMORRHAGIC ANAEMIA [None]
  - INTERNATIONAL NORMALISED RATIO INCREASED [None]
  - RENAL FAILURE ACUTE [None]
  - SUBCUTANEOUS HAEMATOMA [None]
  - SUPERINFECTION [None]
  - THROMBOCYTOPENIA [None]
